FAERS Safety Report 4433791-4 (Version None)
Quarter: 2004Q3

REPORT INFORMATION
  Report Type: 
  Country: None (occurrence: None)
  Receive Date: 20040826
  Receipt Date: 20040820
  Transmission Date: 20050211
  Serious: Yes (Other)
  Sender: FDA-Public Use
  Company Number: GB-MERCK-0408GBR00206

PATIENT
  Age: 51 Year
  Sex: Female
  Weight: 50 kg

DRUGS (5)
  1. FOSAMAX [Suspect]
     Indication: OSTEOPOROSIS
     Route: 048
     Dates: start: 20040615, end: 20040705
  2. CALCIUM (UNSPECIFIED) [Concomitant]
     Route: 065
  3. CIMICIFUGA [Concomitant]
     Route: 065
  4. MAGNESIUM (UNSPECIFIED) [Concomitant]
     Route: 065
  5. VITAMIN E ACETATE [Concomitant]
     Route: 065

REACTIONS (2)
  - EPILEPSY [None]
  - FEELING ABNORMAL [None]
